FAERS Safety Report 8560431-5 (Version None)
Quarter: 2012Q3

REPORT INFORMATION
  Report Type: 
  Country: None (occurrence: None)
  Receive Date: 20120802
  Receipt Date: 20120730
  Transmission Date: 20120928
  Serious: No
  Sender: FDA-Public Use
  Company Number: US-TEVA-351214USA

PATIENT
  Sex: Female

DRUGS (10)
  1. NUVIGIL [Suspect]
     Route: 048
  2. ALENDRONATE SODIUM [Concomitant]
  3. ASPIRIN AND DIPYRIDAMOLE [Concomitant]
  4. GABAPENTIN [Concomitant]
  5. AMPYRA [Suspect]
     Route: 048
     Dates: start: 20120601
  6. AZATHIOPRINE [Concomitant]
  7. ACETYLSALICYLIC ACID [Concomitant]
  8. BACLOFEN [Concomitant]
  9. OMEPRAZOLE [Concomitant]
  10. SENNOSIDE A+B [Concomitant]

REACTIONS (1)
  - INSOMNIA [None]
